FAERS Safety Report 5913059-7 (Version None)
Quarter: 2008Q4

REPORT INFORMATION
  Report Type: 
  Country: None (occurrence: None)
  Receive Date: 20081008
  Receipt Date: 20081008
  Transmission Date: 20090506
  Serious: Yes (Hospitalization)
  Sender: FDA-Public Use
  Company Number: None

PATIENT
  Age: 43 Year
  Sex: Female

DRUGS (7)
  1. CARIMUNE [Suspect]
     Indication: DERMATOMYOSITIS
     Dosage: 30 G IV
     Route: 042
  2. METOPROLOL TARTRATE [Concomitant]
  3. ENOXAPARIN SODIUM [Concomitant]
  4. PANTOPRAZOLE SODIUM [Concomitant]
  5. CEFTRIAXONE [Concomitant]
  6. METHYLPREDNISOLONE [Concomitant]
  7. FENTANYL TRANSDERMAL SYSTEM [Concomitant]

REACTIONS (2)
  - BLOOD CREATININE INCREASED [None]
  - HYPERKALAEMIA [None]
